FAERS Safety Report 22311948 (Version 1)
Quarter: 2023Q2

REPORT INFORMATION
  Report Type: Spontaneous
  Country: DE (occurrence: DE)
  Receive Date: 20230512
  Receipt Date: 20230512
  Transmission Date: 20230722
  Serious: Yes (Life-Threatening, Hospitalization, Other)
  Sender: FDA-Public Use
  Company Number: DE-AMAROX PHARMA-AMR2023DE01130

PATIENT
  Age: 55 Year
  Sex: Male

DRUGS (1)
  1. SILDENAFIL [Suspect]
     Active Substance: SILDENAFIL
     Indication: Erectile dysfunction
     Dosage: 200 MILLIGRAM
     Route: 065

REACTIONS (3)
  - Overdose [Recovered/Resolved]
  - Self-medication [Recovered/Resolved]
  - Subarachnoid haemorrhage [Recovered/Resolved]
